FAERS Safety Report 4699186-3 (Version None)
Quarter: 2005Q2

REPORT INFORMATION
  Report Type: 
  Country: None (occurrence: None)
  Receive Date: 20050624
  Receipt Date: 20050610
  Transmission Date: 20051028
  Serious: Yes (Death, Other)
  Sender: FDA-Public Use
  Company Number: 2005-06-0116

PATIENT
  Age: 65 Year
  Sex: Male
  Weight: 88 kg

DRUGS (10)
  1. ASPIRIN [Suspect]
     Indication: DRUG USE FOR UNKNOWN INDICATION
     Route: 065
     Dates: start: 20050218
  2. CLOPIDOGREL BISULFATE [Suspect]
     Indication: DRUG USE FOR UNKNOWN INDICATION
     Dosage: 600MG PER DAY
     Route: 065
     Dates: start: 20050218
  3. ENOXAPARIN SODIUM [Suspect]
     Indication: DRUG USE FOR UNKNOWN INDICATION
     Dosage: 62MG PER DAY
     Route: 065
     Dates: start: 20050218
  4. HEPARIN [Suspect]
     Indication: DRUG USE FOR UNKNOWN INDICATION
     Dosage: 1000UNIT PER DAY
     Route: 065
     Dates: start: 20050218
  5. NITROGLYCERIN [Concomitant]
     Dates: start: 20050218
  6. MORPHINE [Concomitant]
     Dates: start: 20050218
  7. ATORVASTATIN CALCIUM [Concomitant]
     Dates: start: 20050218
  8. AMINOPHYLLINE [Concomitant]
     Dates: start: 20050218
  9. ANTI-DIABETIC MEDICATION [Concomitant]
  10. INTEGRILIN [Concomitant]
     Indication: ANGIOGRAM
     Route: 042
     Dates: start: 20050218, end: 20050220

REACTIONS (8)
  - BRAIN HERNIATION [None]
  - CEREBRAL HAEMATOMA [None]
  - DELIRIUM TREMENS [None]
  - DEPRESSED LEVEL OF CONSCIOUSNESS [None]
  - DIABETES INSIPIDUS [None]
  - DISSEMINATED INTRAVASCULAR COAGULATION [None]
  - PUPIL FIXED [None]
  - SUBDURAL HAEMATOMA [None]
